FAERS Safety Report 10029774 (Version 1)
Quarter: 2014Q1

REPORT INFORMATION
  Report Type: Spontaneous
  Country: US (occurrence: None)
  Receive Date: 20140321
  Receipt Date: 20140321
  Transmission Date: 20141002
  Serious: Yes (Hospitalization)
  Sender: FDA-Public Use
  Company Number: None

PATIENT
  Age: 65 Year
  Sex: Male
  Weight: 77.11 kg

DRUGS (1)
  1. ELTA MD SKIN CARE SPF 46 [Suspect]
     Indication: PROPHYLAXIS AGAINST SOLAR RADIATION
     Route: 061
     Dates: start: 20140319

REACTIONS (5)
  - Hypersensitivity [None]
  - Wheezing [None]
  - Urticaria [None]
  - Lip oedema [None]
  - Face oedema [None]
